FAERS Safety Report 18288928 (Version 11)
Quarter: 2023Q2

REPORT INFORMATION
  Report Type: Spontaneous
  Country: US (occurrence: US)
  Receive Date: 20200921
  Receipt Date: 20230622
  Transmission Date: 20230722
  Serious: Yes (Death, Other)
  Sender: FDA-Public Use
  Company Number: US-PFIZER INC-2020361336

PATIENT
  Age: 65 Year
  Sex: Female
  Weight: 38.56 kg

DRUGS (7)
  1. XELJANZ XR [Suspect]
     Active Substance: TOFACITINIB CITRATE
     Indication: Pain in extremity
     Dosage: UNK
     Dates: end: 2020
  2. XELJANZ XR [Suspect]
     Active Substance: TOFACITINIB CITRATE
     Indication: Rheumatoid arthritis
     Dosage: UNK
     Dates: start: 2020
  3. XELJANZ XR [Suspect]
     Active Substance: TOFACITINIB CITRATE
     Dosage: 11 MG, 1X/DAY
     Route: 048
  4. XELJANZ XR [Suspect]
     Active Substance: TOFACITINIB CITRATE
     Dosage: UNK, 1X/DAY
     Route: 048
     Dates: start: 202006, end: 202110
  5. PLAQUENIL [Concomitant]
     Active Substance: HYDROXYCHLOROQUINE SULFATE
     Indication: Rheumatoid arthritis
     Dosage: UNK
  6. HYDROXYCHLOROQUINE [Concomitant]
     Active Substance: HYDROXYCHLOROQUINE
     Dosage: UNK
  7. PREDNISONE [Concomitant]
     Active Substance: PREDNISONE
     Indication: Rheumatoid arthritis
     Dosage: 5-10MG, AS NEEDED

REACTIONS (15)
  - Death [Fatal]
  - Oropharyngeal blistering [Unknown]
  - Immunodeficiency [Unknown]
  - Immunosuppression [Unknown]
  - Abscess intestinal [Unknown]
  - Spinal fracture [Unknown]
  - Gastritis bacterial [Unknown]
  - Intentional product misuse [Unknown]
  - Aphthous ulcer [Recovered/Resolved]
  - Oral candidiasis [Recovered/Resolved]
  - Disease recurrence [Recovered/Resolved]
  - Blood pressure increased [Unknown]
  - Oral mucosal blistering [Unknown]
  - Oral disorder [Unknown]
  - Herpes zoster [Recovered/Resolved]

NARRATIVE: CASE EVENT DATE: 20200801
